FAERS Safety Report 7477551-9 (Version None)
Quarter: 2011Q2

REPORT INFORMATION
  Report Type: 
  Country: None (occurrence: None)
  Receive Date: 20110511
  Receipt Date: 20110511
  Transmission Date: 20111010
  Serious: Yes (Other)
  Sender: FDA-Public Use
  Company Number: None

PATIENT
  Age: 46 Year
  Sex: Female
  Weight: 100.1 kg

DRUGS (8)
  1. HYDROCHLOROTHIAZIDE [Concomitant]
  2. LISINOPRIL [Concomitant]
  3. PROTONIX [Concomitant]
  4. DIAZEPAM [Concomitant]
  5. VANCOMYCIN [Suspect]
     Indication: OSTEOMYELITIS
     Dosage: 1500MG - 1750MG Q12 HOURS IV PIGGYBACK
     Route: 042
     Dates: start: 20101020, end: 20101023
  6. LOPERAMIDE [Concomitant]
  7. VANCOMYCIN IV 1 GRAM NOVAPLUS/ HOSPIRA [Concomitant]
     Indication: OSTEOMYELITIS
     Dates: start: 20101020, end: 20101023
  8. METOPROLOL SUCCINATE EXTENDED RELEASE [Concomitant]

REACTIONS (5)
  - RENAL FAILURE ACUTE [None]
  - HYPOTENSION [None]
  - RENAL TUBULAR NECROSIS [None]
  - TOXICITY TO VARIOUS AGENTS [None]
  - DIALYSIS [None]
